FAERS Safety Report 16771681 (Version 1)
Quarter: 2019Q3

REPORT INFORMATION
  Report Type: Spontaneous
  Country: US (occurrence: US)
  Receive Date: 20190715
  Receipt Date: 20190715
  Transmission Date: 20191005
  Serious: No
  Sender: FDA-Public Use
  Company Number: None

PATIENT
  Sex: Female

DRUGS (1)
  1. STELARA [Suspect]
     Active Substance: USTEKINUMAB
     Indication: CROHN^S DISEASE
     Dosage: ?          OTHER DOSE:90MG/1ML;OTHER FREQUENCY:EVERY 8 WEEKS;?
     Route: 058
     Dates: start: 201811, end: 201907

REACTIONS (2)
  - Drug ineffective [None]
  - Immune system disorder [None]
